FAERS Safety Report 11421812 (Version 1)
Quarter: 2015Q3

REPORT INFORMATION
  Report Type: Spontaneous
  Country: AR (occurrence: AR)
  Receive Date: 20150827
  Receipt Date: 20150827
  Transmission Date: 20151125
  Serious: Yes (Other)
  Sender: FDA-Public Use
  Company Number: AR-ROCHE-1626115

PATIENT
  Age: 58 Year
  Sex: Male

DRUGS (7)
  1. RITUXIMAB [Suspect]
     Active Substance: RITUXIMAB
     Indication: CHRONIC LYMPHOCYTIC LEUKAEMIA
     Dosage: FOR 6 CYCLES
     Route: 065
     Dates: start: 200805
  2. RITUXIMAB [Suspect]
     Active Substance: RITUXIMAB
     Dosage: RECEIVED 6 CYCLES
     Route: 065
     Dates: start: 2013
  3. FLUDARABINE [Concomitant]
     Active Substance: FLUDARABINE PHOSPHATE
     Indication: CHRONIC LYMPHOCYTIC LEUKAEMIA
     Dosage: FOR 6 CYCLES
     Route: 065
     Dates: start: 200805
  4. BENDAMUSTINE [Concomitant]
     Active Substance: BENDAMUSTINE
     Indication: CHRONIC LYMPHOCYTIC LEUKAEMIA
     Dosage: RECEIVED 6 CYCLES
     Route: 065
     Dates: start: 2013
  5. RITUXIMAB [Suspect]
     Active Substance: RITUXIMAB
     Dosage: RECEIVED 2 CYCLES
     Route: 065
     Dates: start: 201406
  6. CYCLOPHOSPHAMIDE. [Concomitant]
     Active Substance: CYCLOPHOSPHAMIDE
     Indication: CHRONIC LYMPHOCYTIC LEUKAEMIA
     Route: 065
     Dates: start: 200805
  7. CHLORAMBUCIL [Concomitant]
     Active Substance: CHLORAMBUCIL
     Indication: CHRONIC LYMPHOCYTIC LEUKAEMIA
     Dosage: RECEIVED 2 CYCLES
     Route: 065
     Dates: start: 201406

REACTIONS (3)
  - Cytopenia [Unknown]
  - Leukocytosis [Unknown]
  - Infection [Unknown]

NARRATIVE: CASE EVENT DATE: 201412
